FAERS Safety Report 6367193-0 (Version None)
Quarter: 2009Q3

REPORT INFORMATION
  Report Type: 
  Country: None (occurrence: None)
  Receive Date: 20090821
  Receipt Date: 20090629
  Transmission Date: 20100115
  Serious: No
  Sender: FDA-Public Use
  Company Number: 8048913

PATIENT
  Age: 34 Year
  Sex: Female
  Weight: 69.5 kg

DRUGS (5)
  1. CIMZIA [Suspect]
     Indication: CROHN'S DISEASE
     Dates: start: 20081121
  2. PENTASA [Concomitant]
  3. MULTI-VITAMIN [Concomitant]
  4. CALCIUM [Concomitant]
  5. VYTORIN [Concomitant]

REACTIONS (1)
  - DIARRHOEA [None]
